FAERS Safety Report 23673341 (Version 1)
Quarter: 2024Q1

REPORT INFORMATION
  Report Type: Spontaneous
  Country: US (occurrence: US)
  Receive Date: 20240326
  Receipt Date: 20240326
  Transmission Date: 20240410
  Serious: Yes (Hospitalization, Other)
  Sender: FDA-Public Use
  Company Number: US-AZURITY PHARMACEUTICALS, INC.-US-2024AZR000294

PATIENT
  Age: 65 Year
  Sex: Female

DRUGS (8)
  1. BENDAMUSTINE HYDROCHLORIDE [Suspect]
     Active Substance: BENDAMUSTINE HYDROCHLORIDE
     Indication: Marginal zone lymphoma recurrent
     Dosage: 90 MG/M2
     Route: 065
     Dates: start: 20230923
  2. VANCOMYCIN HYDROCHLORIDE [Suspect]
     Active Substance: VANCOMYCIN HYDROCHLORIDE
     Indication: Pancytopenia
     Dosage: UNK
     Route: 065
     Dates: start: 2023
  3. VANCOMYCIN HYDROCHLORIDE [Suspect]
     Active Substance: VANCOMYCIN HYDROCHLORIDE
     Indication: Neutropenia
  4. RITUXIMAB [Suspect]
     Active Substance: RITUXIMAB
     Indication: Marginal zone lymphoma recurrent
     Dosage: UNK, ONCE
     Route: 065
     Dates: start: 20230923
  5. ACETAMINOPHEN [Concomitant]
     Active Substance: ACETAMINOPHEN
     Indication: Febrile neutropenia
     Dosage: UNK
     Route: 065
     Dates: start: 2023
  6. ZARXIO [Concomitant]
     Active Substance: FILGRASTIM-SNDZ
     Indication: Product used for unknown indication
     Dosage: UNK, QD (DAILY)
     Route: 065
  7. CEFEPIME [Concomitant]
     Active Substance: CEFEPIME HYDROCHLORIDE
     Indication: Pancytopenia
     Dosage: UNK
     Route: 065
     Dates: start: 2023
  8. CEFEPIME [Concomitant]
     Active Substance: CEFEPIME HYDROCHLORIDE
     Indication: Neutropenia

REACTIONS (3)
  - Aplastic anaemia [Recovered/Resolved]
  - Sepsis [Unknown]
  - Product use in unapproved indication [Unknown]

NARRATIVE: CASE EVENT DATE: 20230101
